FAERS Safety Report 18340965 (Version 2)
Quarter: 2020Q4

REPORT INFORMATION
  Report Type: Spontaneous
  Country: US (occurrence: US)
  Receive Date: 20201003
  Receipt Date: 20201014
  Transmission Date: 20210113
  Serious: No
  Sender: FDA-Public Use
  Company Number: US-DRREDDYS-USA/USA/20/0127290

PATIENT
  Age: 79 Year
  Sex: Female

DRUGS (2)
  1. BUPRENORPHINE AND NALOXONE SUBLINGUAL FILM 2 MG/0.5 MG AND 8MG/2MG [Suspect]
     Active Substance: BUPRENORPHINE\NALOXONE
     Dosage: NALOXONE 0.5 MG.
     Route: 060
  2. BUPRENORPHINE AND NALOXONE SUBLINGUAL FILM 2 MG/0.5 MG AND 8MG/2MG [Suspect]
     Active Substance: BUPRENORPHINE\NALOXONE
     Indication: PAIN
     Dosage: BUPRENORPHINE 2 MG.
     Route: 060
     Dates: start: 2020

REACTIONS (2)
  - Therapeutic product effect increased [Unknown]
  - Wrong technique in product usage process [Unknown]
